FAERS Safety Report 7194094-0 (Version None)
Quarter: 2010Q4

REPORT INFORMATION
  Report Type: 
  Country: None (occurrence: None)
  Receive Date: 20101223
  Receipt Date: 20101004
  Transmission Date: 20110411
  Serious: No
  Sender: FDA-Public Use
  Company Number: US-AMGEN-TCS431815

PATIENT

DRUGS (1)
  1. ENBREL [Suspect]
     Indication: RHEUMATOID ARTHRITIS
     Dosage: 50 MG, QWK
     Route: 058
     Dates: start: 19990301

REACTIONS (5)
  - GINGIVAL RECESSION [None]
  - LIVER SCAN ABNORMAL [None]
  - NASOPHARYNGITIS [None]
  - TOOTH EXTRACTION [None]
  - URINARY TRACT INFECTION [None]
